FAERS Safety Report 6736190-5 (Version None)
Quarter: 2010Q2

REPORT INFORMATION
  Report Type: 
  Country: None (occurrence: None)
  Receive Date: 20100521
  Receipt Date: 20100510
  Transmission Date: 20101027
  Serious: Yes (Death, Life-Threatening, Hospitalization)
  Sender: FDA-Public Use
  Company Number: ES-BAYER-200920590GPV

PATIENT
  Age: 57 Year
  Sex: Male
  Weight: 85 kg

DRUGS (13)
  1. NEXAVAR [Suspect]
     Indication: HEPATIC NEOPLASM MALIGNANT RECURRENT
     Route: 048
     Dates: start: 20080428, end: 20090324
  2. NEXAVAR [Suspect]
     Route: 048
     Dates: start: 20080428, end: 20090322
  3. EVEROLIMUS [Suspect]
     Indication: HEPATIC NEOPLASM MALIGNANT RECURRENT
     Route: 048
     Dates: start: 20050101
  4. CERTICAN [Concomitant]
     Indication: LIVER TRANSPLANT
     Route: 048
     Dates: start: 20070101, end: 20090904
  5. ATACAND [Concomitant]
     Indication: NEPHROTIC SYNDROME
     Route: 048
     Dates: start: 20080101
  6. ASPIRIN [Concomitant]
     Indication: PLATELET AGGREGATION INHIBITION
     Route: 048
  7. TRIALMIN [Concomitant]
     Indication: HYPERTRIGLYCERIDAEMIA
     Route: 048
  8. EUGLUCON [Concomitant]
     Indication: TYPE 2 DIABETES MELLITUS
     Route: 048
     Dates: start: 20060101
  9. LESCOL [Concomitant]
     Indication: METABOLIC SYNDROME
     Route: 048
     Dates: start: 20060101
  10. ATACAND HCT [Concomitant]
     Indication: HYPERTENSION
  11. RESINCALCIO [Concomitant]
     Indication: HYPERKALAEMIA
     Route: 065
  12. NEURONTIN [Concomitant]
     Indication: DIABETIC NEUROPATHY
     Route: 065
  13. INSULIN [Concomitant]
     Indication: DIABETES MELLITUS
     Route: 065

REACTIONS (7)
  - CARDIAC FAILURE [None]
  - CARDIAC FAILURE CONGESTIVE [None]
  - CARDIOGENIC SHOCK [None]
  - GASTROINTESTINAL HAEMORRHAGE [None]
  - HEPATIC NEOPLASM MALIGNANT [None]
  - PULMONARY OEDEMA [None]
  - SHOCK HAEMORRHAGIC [None]
